FAERS Safety Report 9979714 (Version 1)
Quarter: 2014Q1

REPORT INFORMATION
  Report Type: Report from Study
  Country: US (occurrence: US)
  Receive Date: 20140306
  Receipt Date: 20140306
  Transmission Date: 20141002
  Serious: No
  Sender: FDA-Public Use
  Company Number: US-ABBVIE-13P-163-1173104-00

PATIENT
  Age: 49 Year
  Sex: Male
  Weight: 140.74 kg

DRUGS (3)
  1. HUMIRA [Suspect]
     Indication: CROHN^S DISEASE
     Route: 058
     Dates: start: 201308, end: 201308
  2. HUMIRA [Suspect]
     Route: 058
     Dates: start: 201308, end: 201308
  3. HUMIRA [Suspect]
     Route: 058
     Dates: start: 201309

REACTIONS (2)
  - Paranasal sinus hypersecretion [Not Recovered/Not Resolved]
  - Nasopharyngitis [Not Recovered/Not Resolved]
